FAERS Safety Report 13805581 (Version 1)
Quarter: 2017Q3

REPORT INFORMATION
  Report Type: Spontaneous
  Country: US (occurrence: US)
  Receive Date: 20170728
  Receipt Date: 20170728
  Transmission Date: 20171127
  Serious: No
  Sender: FDA-Public Use
  Company Number: US-ASTRAZENECA-2017SE76535

PATIENT
  Sex: Female
  Weight: 95.3 kg

DRUGS (2)
  1. METHADONE [Concomitant]
     Active Substance: METHADONE HYDROCHLORIDE
     Indication: BACK PAIN
     Route: 048
     Dates: start: 2004
  2. MOVANTIK [Suspect]
     Active Substance: NALOXEGOL OXALATE
     Indication: CONSTIPATION
     Route: 048
     Dates: start: 2017, end: 201707

REACTIONS (11)
  - Drug screen [Unknown]
  - Circumstance or information capable of leading to medication error [Unknown]
  - Diarrhoea [Unknown]
  - Drug ineffective [Unknown]
  - Muscle spasms [Unknown]
  - Product use issue [Unknown]
  - Constipation [Unknown]
  - Intentional product misuse [Unknown]
  - Hot flush [Unknown]
  - Body height decreased [Unknown]
  - Hyperhidrosis [Unknown]
